FAERS Safety Report 4338752-1 (Version None)
Quarter: 2004Q2

REPORT INFORMATION
  Report Type: 
  Country: None (occurrence: None)
  Receive Date: 20040409
  Receipt Date: 20040401
  Transmission Date: 20050107
  Serious: Yes (Other)
  Sender: FDA-Public Use
  Company Number: 200411585BCC

PATIENT
  Age: 46 Year
  Sex: Male
  Weight: 95.2554 kg

DRUGS (1)
  1. ALEVE COLD AND SINUS [Suspect]
     Indication: NASOPHARYNGITIS
     Dosage: 440 MG, TOTAL DAILY, ORAL
     Route: 048
     Dates: start: 20040401

REACTIONS (1)
  - CHEST PAIN [None]
